FAERS Safety Report 6657405-8 (Version None)
Quarter: 2010Q1

REPORT INFORMATION
  Report Type: 
  Country: None (occurrence: None)
  Receive Date: 20100330
  Receipt Date: 20100319
  Transmission Date: 20100710
  Serious: Yes (Other)
  Sender: FDA-Public Use
  Company Number: SE-BAXTER-2010BH007694

PATIENT
  Age: 48 Year
  Sex: Female

DRUGS (2)
  1. TISSUCOL/TISSEEL DUO STIM4 [Suspect]
     Indication: SURGERY
     Route: 065
     Dates: start: 20080413, end: 20080413
  2. TISSUCOL/TISSEEL DUO STIM4 [Suspect]
     Indication: INTRA-CEREBRAL ANEURYSM OPERATION
     Route: 065
     Dates: start: 20080413, end: 20080413

REACTIONS (3)
  - APHASIA [None]
  - APPLICATION SITE SWELLING [None]
  - HEMIPARESIS [None]
